FAERS Safety Report 7828851-1 (Version None)
Quarter: 2011Q4

REPORT INFORMATION
  Report Type: 
  Country: None (occurrence: None)
  Receive Date: 20111020
  Receipt Date: 20111013
  Transmission Date: 20120403
  Serious: Yes (Other)
  Sender: FDA-Public Use
  Company Number: CHPA2011US14197

PATIENT
  Age: 75 Year
  Sex: Female

DRUGS (1)
  1. EXCEDRIN TENSION HEADACHE CAPLETS [Suspect]
     Indication: PAIN
     Dosage: 2 DF, QID
     Route: 048

REACTIONS (9)
  - PARAESTHESIA [None]
  - BONE GRAFT [None]
  - BONE OPERATION [None]
  - OFF LABEL USE [None]
  - INCORRECT DRUG ADMINISTRATION DURATION [None]
  - LOWER LIMB FRACTURE [None]
  - NERVE INJURY [None]
  - BURNING SENSATION [None]
  - INTERNAL FIXATION OF FRACTURE [None]
